FAERS Safety Report 15017521 (Version 1)
Quarter: 2018Q2

REPORT INFORMATION
  Report Type: Report from Study
  Country: None (occurrence: RO)
  Receive Date: 20180615
  Receipt Date: 20180615
  Transmission Date: 20180711
  Serious: Yes (Hospitalization, Other)
  Sender: FDA-Public Use
  Company Number: RO-ABBVIE-18K-135-2385546-00

PATIENT
  Age: 78 Year
  Sex: Male

DRUGS (1)
  1. DUODOPA [Suspect]
     Active Substance: CARBIDOPA\LEVODOPA
     Indication: PARKINSON^S DISEASE
     Dosage: MD=9.00, CD=6.40, ED=3.50, NRED=0
     Route: 050
     Dates: start: 20160303

REACTIONS (3)
  - Metastases to liver [Not Recovered/Not Resolved]
  - Pneumonia [Not Recovered/Not Resolved]
  - Klebsiella infection [Recovering/Resolving]

NARRATIVE: CASE EVENT DATE: 20170525
